FAERS Safety Report 11891435 (Version 2)
Quarter: 2016Q2

REPORT INFORMATION
  Report Type: Spontaneous
  Country: US (occurrence: US)
  Receive Date: 20160106
  Receipt Date: 20160408
  Transmission Date: 20160815
  Serious: No
  Sender: FDA-Public Use
  Company Number: US-TEVA-620078ACC

PATIENT
  Age: 38 Year
  Sex: Female
  Weight: 91.71 kg

DRUGS (3)
  1. SYNTHROID [Concomitant]
     Active Substance: LEVOTHYROXINE SODIUM
     Indication: HYPOTHYROIDISM
     Dosage: 0.2/0.225 (UNITS UNSPECIFIED) ON ALTERNATE DAYS
  2. PARAGARD T 380A [Suspect]
     Active Substance: COPPER
     Indication: CONTRACEPTION
     Dates: end: 20151215
  3. URSODIOL. [Concomitant]
     Active Substance: URSODIOL
     Indication: BILIARY CIRRHOSIS PRIMARY
     Dosage: 1800 MILLIGRAM DAILY;

REACTIONS (4)
  - Muscle spasms [Unknown]
  - Device breakage [Recovered/Resolved with Sequelae]
  - Embedded device [Recovered/Resolved with Sequelae]
  - Menorrhagia [Unknown]

NARRATIVE: CASE EVENT DATE: 20151215
